FAERS Safety Report 23364939 (Version 1)
Quarter: 2024Q1

REPORT INFORMATION
  Report Type: Other
  Country: US (occurrence: None)
  Receive Date: 20240104
  Receipt Date: 20240104
  Transmission Date: 20240410
  Serious: Yes (Death, Hospitalization)
  Sender: FDA-Public Use
  Company Number: US-ROCHE-3484974

PATIENT
  Age: 83 Year
  Sex: Male

DRUGS (3)
  1. VEMURAFENIB [Suspect]
     Active Substance: VEMURAFENIB
     Indication: Cytopenia
     Route: 065
  2. RITUXIMAB [Suspect]
     Active Substance: RITUXIMAB
     Indication: Hairy cell leukaemia
     Route: 065
  3. MOXETUMOMAB PASUDOTOX [Concomitant]
     Active Substance: MOXETUMOMAB PASUDOTOX

REACTIONS (2)
  - COVID-19 pneumonia [Fatal]
  - Skin toxicity [Unknown]
